FAERS Safety Report 8273532-6 (Version None)
Quarter: 2012Q2

REPORT INFORMATION
  Report Type: 
  Country: None (occurrence: None)
  Receive Date: 20120411
  Receipt Date: 20120118
  Transmission Date: 20120825
  Serious: No
  Sender: FDA-Public Use
  Company Number: US-TEVA-2011005785

PATIENT
  Sex: Male
  Weight: 100.79 kg

DRUGS (9)
  1. ALBUTEROL [Concomitant]
  2. TERAZOSIN HCL [Concomitant]
  3. FEXOFENADINE [Concomitant]
  4. CALCIUM CARBONATE [Concomitant]
  5. NUVIGIL [Suspect]
     Indication: SLEEP APNOEA SYNDROME
     Dosage: 150 MILLIGRAM;
     Route: 048
     Dates: start: 20111001, end: 20111108
  6. MONTELUKAST [Concomitant]
  7. ATENOLOL [Concomitant]
  8. NAPROXEN [Concomitant]
  9. POTASSIUM [Concomitant]

REACTIONS (2)
  - PRURITUS GENERALISED [None]
  - RASH PRURITIC [None]
